FAERS Safety Report 24680721 (Version 2)
Quarter: 2025Q3

REPORT INFORMATION
  Report Type: Report from Study
  Country: TW (occurrence: TW)
  Receive Date: 20241129
  Receipt Date: 20250809
  Transmission Date: 20251020
  Serious: Yes (Other)
  Sender: ALEXION PHARMACEUTICALS
  Company Number: TW-AstraZeneca-CH-00753617A

PATIENT
  Sex: Female

DRUGS (2)
  1. IMJUDO [Suspect]
     Active Substance: TREMELIMUMAB\TREMELIMUMAB-ACTL
     Indication: Hepatic cancer
  2. DURVALUMAB [Suspect]
     Active Substance: DURVALUMAB
     Indication: Hepatic cancer

REACTIONS (2)
  - Mental impairment [Unknown]
  - Asthenia [Unknown]
